FAERS Safety Report 24315795 (Version 2)
Quarter: 2024Q3

REPORT INFORMATION
  Report Type: Spontaneous
  Country: ES (occurrence: ES)
  Receive Date: 20240913
  Receipt Date: 20240927
  Transmission Date: 20241016
  Serious: Yes (Death)
  Sender: IDORSIA PHARMACEUTICALS
  Company Number: ES-IDORSIA-008372-2024-ES

PATIENT
  Age: 93 Year
  Sex: Male

DRUGS (2)
  1. QUVIVIQ [Suspect]
     Active Substance: DARIDOREXANT
     Indication: Insomnia
     Dosage: 25 MG, QD
     Route: 048
     Dates: start: 20240813, end: 20240817
  2. LEVOCARNITINE [Concomitant]
     Active Substance: LEVOCARNITINE

REACTIONS (6)
  - Lung disorder [Fatal]
  - Insomnia [Unknown]
  - Agitation [Recovered/Resolved]
  - Restlessness [Recovered/Resolved]
  - Nervousness [Recovered/Resolved]
  - Oxygen saturation decreased [Fatal]

NARRATIVE: CASE EVENT DATE: 20240815
